FAERS Safety Report 4295548-7 (Version None)
Quarter: 2004Q1

REPORT INFORMATION
  Report Type: 
  Country: None (occurrence: None)
  Receive Date: 20040216
  Receipt Date: 20030717
  Transmission Date: 20041129
  Serious: No
  Sender: FDA-Public Use
  Company Number: US-GLAXOSMITHKLINE-A0417237A

PATIENT
  Age: 38 Year
  Sex: Male

DRUGS (5)
  1. PAXIL [Suspect]
     Indication: DEPRESSION
     Route: 048
     Dates: start: 20030601
  2. CLARITIN [Concomitant]
  3. MOTRIN [Concomitant]
  4. ALBUTEROL [Concomitant]
  5. UNSPECIFIED MEDICATION [Concomitant]

REACTIONS (1)
  - DRUG SCREEN POSITIVE [None]
